FAERS Safety Report 6707141-4 (Version None)
Quarter: 2010Q2

REPORT INFORMATION
  Report Type: 
  Country: None (occurrence: None)
  Receive Date: 20100503
  Receipt Date: 20100423
  Transmission Date: 20101027
  Serious: Yes (Hospitalization)
  Sender: FDA-Public Use
  Company Number: CZ-ABBOTT-09P-217-0572065-00

PATIENT
  Sex: Male

DRUGS (2)
  1. HUMIRA [Suspect]
     Indication: CROHN'S DISEASE
     Route: 058
  2. APO IBUPROFEN [Concomitant]
     Indication: ANKYLOSING SPONDYLITIS
     Dates: start: 20030101

REACTIONS (1)
  - PERIRECTAL ABSCESS [None]
